FAERS Safety Report 14076179 (Version 2)
Quarter: 2017Q4

REPORT INFORMATION
  Report Type: Spontaneous
  Country: US (occurrence: US)
  Receive Date: 20171011
  Receipt Date: 20171027
  Transmission Date: 20180321
  Serious: Yes (Life-Threatening, Hospitalization)
  Sender: FDA-Public Use
  Company Number: PHEH2017US032197

PATIENT
  Sex: Male

DRUGS (1)
  1. ENTRESTO [Suspect]
     Active Substance: SACUBITRIL\VALSARTAN
     Indication: PRODUCT USED FOR UNKNOWN INDICATION
     Dosage: 50 MG, UNK
     Route: 065
     Dates: start: 201704

REACTIONS (7)
  - Apparent death [Unknown]
  - Amnesia [Unknown]
  - Blood potassium increased [Unknown]
  - Muscle injury [Unknown]
  - Movement disorder [Unknown]
  - Pain [Unknown]
  - Joint swelling [Unknown]
